FAERS Safety Report 8508471 (Version 3)
Quarter: 2013Q2

REPORT INFORMATION
  Report Type: Spontaneous
  Country: US (occurrence: US)
  Receive Date: 20120412
  Receipt Date: 20130506
  Transmission Date: 20140414
  Serious: No
  Sender: FDA-Public Use
  Company Number: US-ASTRAZENECA-2011SE26315

PATIENT
  Age: 43 Year
  Sex: Female

DRUGS (4)
  1. NEXIUM [Suspect]
     Route: 048
  2. TUMS [Concomitant]
  3. ROLAIDS [Concomitant]
  4. RANITIDINE [Concomitant]

REACTIONS (10)
  - Dyspepsia [Unknown]
  - Gastrooesophageal reflux disease [Unknown]
  - Cough [Unknown]
  - Nasal congestion [Unknown]
  - Nasopharyngitis [Unknown]
  - Dyspepsia [Unknown]
  - Head discomfort [Unknown]
  - Abdominal discomfort [Unknown]
  - Malaise [Unknown]
  - Drug dose omission [Unknown]
